FAERS Safety Report 11636799 (Version 1)
Quarter: 2015Q4

REPORT INFORMATION
  Report Type: Spontaneous
  Country: US (occurrence: None)
  Receive Date: 20151015
  Receipt Date: 20151015
  Transmission Date: 20160304
  Serious: Yes (Life-Threatening, Hospitalization)
  Sender: FDA-Public Use
  Company Number: None

PATIENT
  Age: 70 Year
  Sex: Female

DRUGS (6)
  1. XARELTO [Suspect]
     Active Substance: RIVAROXABAN
     Indication: ATRIAL FIBRILLATION
     Dosage: QSH/BEDTIME
     Route: 048
     Dates: end: 20150722
  2. SIMVASTATIN. [Concomitant]
     Active Substance: SIMVASTATIN
  3. SERTRALINE [Concomitant]
     Active Substance: SERTRALINE HYDROCHLORIDE
  4. NITROSTAT [Concomitant]
     Active Substance: NITROGLYCERIN
  5. XARELTO [Suspect]
     Active Substance: RIVAROXABAN
     Indication: CEREBROVASCULAR ACCIDENT PROPHYLAXIS
     Dosage: QSH/BEDTIME
     Route: 048
     Dates: end: 20150722
  6. SYNTHROID [Concomitant]
     Active Substance: LEVOTHYROXINE SODIUM

REACTIONS (4)
  - Chest discomfort [None]
  - Pulmonary embolism [None]
  - Cough [None]
  - Lung consolidation [None]

NARRATIVE: CASE EVENT DATE: 20150722
